FAERS Safety Report 19367547 (Version 1)
Quarter: 2021Q2

REPORT INFORMATION
  Report Type: Spontaneous
  Country: US (occurrence: US)
  Receive Date: 20210603
  Receipt Date: 20210603
  Transmission Date: 20210717
  Serious: Yes (Other)
  Sender: FDA-Public Use
  Company Number: US-ABBVIE-21K-163-3911171-00

PATIENT
  Sex: Male
  Weight: 99.88 kg

DRUGS (11)
  1. SUMATRIPTAN. [Concomitant]
     Active Substance: SUMATRIPTAN
     Indication: MIGRAINE
  2. SYNTHROID [Suspect]
     Active Substance: LEVOTHYROXINE SODIUM
     Route: 048
     Dates: start: 2020
  3. LEVOTHYROXINE. [Suspect]
     Active Substance: LEVOTHYROXINE
     Indication: PRODUCT USED FOR UNKNOWN INDICATION
     Route: 048
     Dates: start: 2011
  4. LEVOTHYROXINE. [Suspect]
     Active Substance: LEVOTHYROXINE
     Route: 048
  5. LEVOTHYROXINE. [Suspect]
     Active Substance: LEVOTHYROXINE
     Route: 048
  6. LEVOTHYROXINE. [Suspect]
     Active Substance: LEVOTHYROXINE
     Route: 048
  7. COVID?19 VACCINE NOS. [Concomitant]
     Active Substance: COVID-19 VACCINE NOS
     Indication: COVID-19 IMMUNISATION
     Dosage: MODERNA
     Route: 030
  8. SYNTHROID [Suspect]
     Active Substance: LEVOTHYROXINE SODIUM
     Route: 048
     Dates: start: 202105
  9. LEVOTHYROXINE. [Suspect]
     Active Substance: LEVOTHYROXINE
     Route: 048
  10. SYNTHROID [Suspect]
     Active Substance: LEVOTHYROXINE SODIUM
     Indication: HYPOTHYROIDISM
     Dosage: A FEW MONTHS
     Route: 048
     Dates: start: 2011
  11. LEVOTHYROXINE. [Suspect]
     Active Substance: LEVOTHYROXINE
     Route: 048
     Dates: start: 202105

REACTIONS (5)
  - Thyroid function test abnormal [Recovered/Resolved]
  - Blood thyroid stimulating hormone decreased [Recovered/Resolved]
  - Blood thyroid stimulating hormone increased [Recovered/Resolved]
  - Ligament rupture [Recovered/Resolved]
  - Drug ineffective [Recovered/Resolved]
